FAERS Safety Report 7783440-2 (Version None)
Quarter: 2011Q3

REPORT INFORMATION
  Report Type: 
  Country: None (occurrence: None)
  Receive Date: 20110928
  Receipt Date: 20110928
  Transmission Date: 20111222
  Serious: Yes (Other)
  Sender: FDA-Public Use
  Company Number: None

PATIENT
  Sex: Female
  Weight: 61.234 kg

DRUGS (2)
  1. CLINDAMYCIN INTRAVENOUS [Concomitant]
     Indication: FOOT DEFORMITY
     Dosage: UNKNOWN DOSE
     Route: 041
     Dates: start: 20110824, end: 20110824
  2. CLINDAMYCIN [Suspect]
     Indication: FOOT DEFORMITY
     Dosage: 300 MG
     Route: 048
     Dates: start: 20110824, end: 20110825

REACTIONS (5)
  - MUSCLE SPASMS [None]
  - ABDOMINAL DISTENSION [None]
  - NAUSEA [None]
  - MUCOUS STOOLS [None]
  - DIZZINESS [None]
